FAERS Safety Report 10039908 (Version 1)
Quarter: 2014Q1

REPORT INFORMATION
  Report Type: Spontaneous
  Country: BR (occurrence: BR)
  Receive Date: 20140326
  Receipt Date: 20140326
  Transmission Date: 20141002
  Serious: Yes (Other)
  Sender: FDA-Public Use
  Company Number: BR-PFIZER INC-2014082990

PATIENT
  Age: 42 Year
  Sex: Male

DRUGS (1)
  1. CELEBRA [Suspect]
     Dosage: STRENGTH 200 MG
     Dates: start: 201302, end: 201309

REACTIONS (1)
  - Arthropathy [Unknown]
